FAERS Safety Report 5443974-2 (Version None)
Quarter: 2007Q3

REPORT INFORMATION
  Report Type: 
  Country: None (occurrence: None)
  Receive Date: 20070905
  Receipt Date: 20070828
  Transmission Date: 20080115
  Serious: Yes (Hospitalization, Other)
  Sender: FDA-Public Use
  Company Number: BE-ABBOTT-07P-013-0373836-00

PATIENT
  Sex: Female

DRUGS (19)
  1. NORVIR [Suspect]
     Indication: HIV INFECTION
     Dates: start: 20060303, end: 20061111
  2. NORVIR [Suspect]
     Dates: start: 20070111
  3. FOSAMPRENAVIR [Concomitant]
     Indication: HIV INFECTION
     Dates: start: 20060303, end: 20061111
  4. FOSAMPRENAVIR [Concomitant]
     Dates: start: 20070111
  5. TENOFOVIR DISOPROXIL FUMARATE [Concomitant]
     Indication: HIV INFECTION
     Dates: start: 20060303, end: 20061111
  6. TENOFOVIR DISOPROXIL FUMARATE [Concomitant]
     Dates: start: 20070111
  7. ABACAVIR SULFATE W/LAMIVUDINE [Concomitant]
     Indication: HIV INFECTION
     Dates: start: 20060303, end: 20061111
  8. ABACAVIR SULFATE W/LAMIVUDINE [Concomitant]
     Dates: start: 20070111
  9. POTASSIUM CANRENOATE [Concomitant]
     Indication: HYPERTENSION
     Dates: start: 20051013
  10. POTASSIUM CANRENOATE [Concomitant]
  11. FUROSEMIDE [Concomitant]
     Indication: DRUG USE FOR UNKNOWN INDICATION
  12. LEVOTHYROXINE SODIUM [Concomitant]
     Indication: DRUG USE FOR UNKNOWN INDICATION
  13. PROTHIPENDYL HYDROCHLORIDE [Concomitant]
     Indication: DRUG USE FOR UNKNOWN INDICATION
  14. THIAMINE HCL [Concomitant]
     Indication: DRUG USE FOR UNKNOWN INDICATION
  15. OMEPRAZOLE [Concomitant]
     Indication: DRUG USE FOR UNKNOWN INDICATION
  16. PROPRANOLOL [Concomitant]
     Indication: DRUG USE FOR UNKNOWN INDICATION
  17. CITALOPRAM HYDROBROMIDE [Concomitant]
     Indication: DRUG USE FOR UNKNOWN INDICATION
  18. LACTOBACILLUS ACIDOPHILUS [Concomitant]
     Indication: DRUG USE FOR UNKNOWN INDICATION
  19. ALIZAPRIDE [Concomitant]
     Indication: DRUG USE FOR UNKNOWN INDICATION

REACTIONS (10)
  - ANOREXIA [None]
  - ASTHENIA [None]
  - BLOOD CULTURE POSITIVE [None]
  - BRONCHOPNEUMONIA [None]
  - DYSPNOEA [None]
  - GENERAL PHYSICAL CONDITION ABNORMAL [None]
  - PNEUMONIA KLEBSIELLA [None]
  - PRODUCTIVE COUGH [None]
  - PYREXIA [None]
  - SPUTUM PURULENT [None]
